FAERS Safety Report 26073630 (Version 1)
Quarter: 2025Q4

REPORT INFORMATION
  Report Type: Spontaneous
  Country: US (occurrence: US)
  Receive Date: 20251121
  Receipt Date: 20251121
  Transmission Date: 20260118
  Serious: Yes (Other)
  Sender: BIOGEN
  Company Number: US-BIOGEN-2091510

PATIENT
  Age: 58 Year
  Sex: Female

DRUGS (1)
  1. TECFIDERA [Suspect]
     Active Substance: DIMETHYL FUMARATE
     Indication: Product used for unknown indication

REACTIONS (2)
  - Triple negative breast cancer [Unknown]
  - Procedural pain [Unknown]

NARRATIVE: CASE EVENT DATE: 20170101
